FAERS Safety Report 11063275 (Version 1)
Quarter: 2015Q2

REPORT INFORMATION
  Report Type: Spontaneous
  Country: GR (occurrence: GR)
  Receive Date: 20150424
  Receipt Date: 20150424
  Transmission Date: 20150821
  Serious: Yes (Other)
  Sender: FDA-Public Use
  Company Number: GR-BAYER-2015-135862

PATIENT
  Age: 77 Year
  Sex: Female

DRUGS (1)
  1. CIPROXIN [Suspect]
     Active Substance: CIPROFLOXACIN
     Indication: URINARY TRACT INFECTION
     Dosage: 500 MG, BID
     Route: 048
     Dates: start: 20150411, end: 20150413

REACTIONS (3)
  - Aggression [Not Recovered/Not Resolved]
  - Depression [Not Recovered/Not Resolved]
  - Aphagia [Recovered/Resolved]

NARRATIVE: CASE EVENT DATE: 20150411
